FAERS Safety Report 14244550 (Version 3)
Quarter: 2018Q1

REPORT INFORMATION
  Report Type: Spontaneous
  Country: US (occurrence: US)
  Receive Date: 20171201
  Receipt Date: 20180131
  Transmission Date: 20180508
  Serious: No
  Sender: FDA-Public Use
  Company Number: US-GLAXOSMITHKLINE-US2017183803

PATIENT
  Age: 60 Year
  Sex: Male

DRUGS (1)
  1. VENTOLIN HFA [Suspect]
     Active Substance: ALBUTEROL SULFATE
     Indication: DYSPNOEA

REACTIONS (3)
  - Drug dose omission [Recovered/Resolved]
  - Product quality issue [Unknown]
  - Underdose [Unknown]

NARRATIVE: CASE EVENT DATE: 20171129
